FAERS Safety Report 23263023 (Version 1)
Quarter: 2023Q4

REPORT INFORMATION
  Report Type: Spontaneous
  Country: FR (occurrence: FR)
  Receive Date: 20231205
  Receipt Date: 20231205
  Transmission Date: 20240109
  Serious: Yes (Hospitalization)
  Sender: FDA-Public Use
  Company Number: FR-Merck Healthcare KGaA-2023488028

PATIENT
  Age: 63 Year
  Sex: Female

DRUGS (1)
  1. LEVOTHYROXINE [Suspect]
     Active Substance: LEVOTHYROXINE
     Indication: Product used for unknown indication
     Dates: start: 2017

REACTIONS (2)
  - Diplegia [Recovered/Resolved]
  - Blood thyroid stimulating hormone increased [Recovered/Resolved]

NARRATIVE: CASE EVENT DATE: 20170101
